FAERS Safety Report 5154600-4 (Version None)
Quarter: 2006Q4

REPORT INFORMATION
  Report Type: 
  Country: None (occurrence: None)
  Receive Date: 20061120
  Receipt Date: 20061013
  Transmission Date: 20070319
  Serious: Yes (Life-Threatening, Hospitalization)
  Sender: FDA-Public Use
  Company Number: AU-ABBOTT-06P-008-0346853-00

PATIENT
  Sex: Female

DRUGS (14)
  1. HUMIRA [Suspect]
     Indication: RHEUMATOID ARTHRITIS
     Route: 058
     Dates: start: 20041001, end: 20060721
  2. ETANERCEPT [Suspect]
     Indication: RHEUMATOID ARTHRITIS
     Dates: end: 20040101
  3. METHOTREXATE [Suspect]
     Indication: DRUG USE FOR UNKNOWN INDICATION
  4. PREDNISOLONE [Suspect]
     Indication: DRUG USE FOR UNKNOWN INDICATION
  5. ALENDRONATE SODIUM [Concomitant]
     Indication: DRUG USE FOR UNKNOWN INDICATION
     Route: 048
  6. RANITIDINE [Concomitant]
     Indication: DRUG USE FOR UNKNOWN INDICATION
     Route: 048
  7. DOMPERIDONE [Concomitant]
     Indication: DRUG USE FOR UNKNOWN INDICATION
     Route: 048
  8. CODEINE [Concomitant]
     Indication: DRUG USE FOR UNKNOWN INDICATION
  9. SLOW-K [Concomitant]
     Indication: DRUG USE FOR UNKNOWN INDICATION
  10. ONDANSETRON [Concomitant]
     Indication: NAUSEA
  11. ONDANSETRON [Concomitant]
     Indication: VOMITING
  12. IBUPROFEN [Concomitant]
     Indication: DRUG USE FOR UNKNOWN INDICATION
     Route: 048
  13. RECTINOL [Concomitant]
     Indication: HAEMORRHOIDS
     Route: 054
  14. OXYCODONE HCL [Concomitant]
     Indication: DRUG USE FOR UNKNOWN INDICATION

REACTIONS (9)
  - BRAIN MASS [None]
  - DEAFNESS [None]
  - DISSEMINATED TUBERCULOSIS [None]
  - GRANULOMA [None]
  - HAEMORRHOIDS [None]
  - HEPATIC LESION [None]
  - NAUSEA [None]
  - PULMONARY MASS [None]
  - VOMITING [None]
